FAERS Safety Report 4553619-1 (Version None)
Quarter: 2004Q4

REPORT INFORMATION
  Report Type: 
  Country: None (occurrence: None)
  Receive Date: 20041227
  Receipt Date: 20041015
  Transmission Date: 20050328
  Serious: No
  Sender: FDA-Public Use
  Company Number: 04P-163-0277755

PATIENT
  Age: 57 Year
  Sex: Female
  Weight: 70.3075 kg

DRUGS (11)
  1. HUMIRA [Suspect]
     Indication: RHEUMATOID ARTHRITIS
     Dosage: 40 MG, 1 IN 2 WK, SUBCUTANEOUS
     Route: 058
     Dates: start: 20030101
  2. BUCINDOLOL HYDROCHLORIDE [Concomitant]
  3. ROFECOXIB [Concomitant]
  4. METHOTREXATE SODIUM [Concomitant]
  5. FOLIC ACID [Concomitant]
  6. CALCIUM GLUCONATE [Concomitant]
  7. ZOCOR [Concomitant]
  8. DOXEPIN HCL [Concomitant]
  9. FLUOXETINE HYDROCHLORIDE [Concomitant]
  10. ACETAMINOPHEN [Concomitant]
  11. HYDROCODONE [Concomitant]

REACTIONS (3)
  - PRURITUS [None]
  - RASH ERYTHEMATOUS [None]
  - SKIN NODULE [None]
